FAERS Safety Report 6653603-8 (Version None)
Quarter: 2010Q1

REPORT INFORMATION
  Report Type: 
  Country: None (occurrence: None)
  Receive Date: 20100324
  Receipt Date: 20100312
  Transmission Date: 20100710
  Serious: Yes (Other)
  Sender: FDA-Public Use
  Company Number: 2009-00090

PATIENT
  Age: 57 Year
  Sex: Female

DRUGS (1)
  1. SIMVASTATIN [Suspect]
     Indication: DRUG USE FOR UNKNOWN INDICATION
     Dosage: 10 MG, ORAL 20 MG, ORAL
     Route: 048
     Dates: end: 20091203

REACTIONS (5)
  - ABDOMINAL PAIN [None]
  - BREAST CANCER [None]
  - CHILLS [None]
  - DIARRHOEA [None]
  - RASH [None]
